FAERS Safety Report 7010111-2 (Version None)
Quarter: 2010Q3

REPORT INFORMATION
  Report Type: 
  Country: None (occurrence: None)
  Receive Date: 20100923
  Receipt Date: 20100917
  Transmission Date: 20110219
  Serious: Yes (Other)
  Sender: FDA-Public Use
  Company Number: US-JNJCH-2010021159

PATIENT
  Age: 79 Year
  Sex: Male

DRUGS (3)
  1. POLYSPORIN OINTMENT [Suspect]
     Indication: PRODUCT USED FOR UNKNOWN INDICATION
     Dosage: TEXT:UNKNOWN
     Route: 061
  2. STOMATOLOGICALS, MOUTH PREPARATIONS [Suspect]
     Indication: DENTURE WEARER
     Dosage: TEXT:UNKNOWN
     Route: 050
  3. ZINC PRODUCTS [Suspect]
     Indication: PRODUCT USED FOR UNKNOWN INDICATION
     Dosage: TEXT:UNKNOWN
     Route: 065

REACTIONS (6)
  - ASTHENIA [None]
  - BALANCE DISORDER [None]
  - DIPLEGIA [None]
  - FALL [None]
  - GAIT DISTURBANCE [None]
  - HYPOAESTHESIA [None]
